FAERS Safety Report 6607930-0 (Version None)
Quarter: 2010Q1

REPORT INFORMATION
  Report Type: 
  Country: None (occurrence: None)
  Receive Date: 20100222
  Receipt Date: 20100212
  Transmission Date: 20100710
  Serious: Yes (Other)
  Sender: FDA-Public Use
  Company Number: 2010US000451

PATIENT
  Age: 39 Year
  Sex: Female

DRUGS (1)
  1. VESICARE [Suspect]
     Indication: DRUG USE FOR UNKNOWN INDICATION
     Dosage: 5 MG, UNKNOWN/D, ORAL
     Route: 048
     Dates: start: 20100129

REACTIONS (2)
  - CHEST PAIN [None]
  - NAUSEA [None]
